FAERS Safety Report 9744067 (Version 2)
Quarter: 2013Q4

REPORT INFORMATION
  Report Type: Report from Study
  Country: BR (occurrence: BR)
  Receive Date: 20131210
  Receipt Date: 20131220
  Transmission Date: 20140711
  Serious: Yes (Hospitalization)
  Sender: FDA-Public Use
  Company Number: BR-BRISTOL-MYERS SQUIBB COMPANY-19900240

PATIENT
  Age: 65 Year
  Sex: Female

DRUGS (1)
  1. ABATACEPT [Suspect]
     Indication: RHEUMATOID ARTHRITIS
     Dosage: 1DF = 125 MG/ML
     Route: 058
     Dates: start: 20090309, end: 20130527

REACTIONS (1)
  - Haemorrhoids [Recovered/Resolved]
